FAERS Safety Report 9171180 (Version 1)
Quarter: 2013Q1

REPORT INFORMATION
  Report Type: Spontaneous
  Country: DE (occurrence: None)
  Receive Date: 20130308
  Receipt Date: 20130308
  Transmission Date: 20140127
  Serious: Yes (Congenital Anomaly)
  Sender: FDA-Public Use
  Company Number: DSM-2013-00269

PATIENT
  Sex: Male

DRUGS (7)
  1. OLMESARTAN MEDOXOMIL (OLMESARTAN MEDOXOMIL) (TABLET) [Suspect]
     Indication: FOETAL EXPOSURE DURING PREGNANCY
     Route: 015
  2. ENALAPRIL (ENALAPRIL) (ENALAPRIL) [Concomitant]
  3. LERCANIDIPINE (LERCANIDIPINE) (LERCANIDIPINE) [Concomitant]
  4. METOPROLOL (METOPROLOL) (METOPROLOL) [Concomitant]
  5. NIFEDIPINE (NIFEDIPINE) [Concomitant]
  6. METHYLDOPA (METHYLDOPA) (METHYLDOPA) [Concomitant]
  7. ANTIRETROVIRAL MEDICATION FOR HIV (ANTIVIRALS FOR TREATMENT OF HIV INFECTIONS, C) [Concomitant]

REACTIONS (5)
  - Congenital hearing disorder [None]
  - Maternal drugs affecting foetus [None]
  - Congenital choroid plexus cyst [None]
  - Supernumerary nipple [None]
  - Caesarean section [None]
